FAERS Safety Report 9152638 (Version 1)
Quarter: 2013Q1

REPORT INFORMATION
  Report Type: Spontaneous
  Country: US (occurrence: US)
  Receive Date: 20130308
  Receipt Date: 20130308
  Transmission Date: 20140127
  Serious: No
  Sender: FDA-Public Use
  Company Number: US-BAYER-2013-024366

PATIENT
  Sex: 0

DRUGS (2)
  1. ALEVE CAPLET/TABLET,MIDOL EXTENDED RELIEF CAPLET [Suspect]
     Indication: BACK PAIN
  2. TURMERIC [Concomitant]

REACTIONS (3)
  - Drug ineffective [None]
  - Alcohol interaction [None]
  - Inappropriate schedule of drug administration [None]
